FAERS Safety Report 4314470-0 (Version None)
Quarter: 2004Q1

REPORT INFORMATION
  Report Type: 
  Country: None (occurrence: None)
  Receive Date: 20040308
  Receipt Date: 20040302
  Transmission Date: 20041129
  Serious: Yes (Hospitalization)
  Sender: FDA-Public Use
  Company Number: 2004-03-0037

PATIENT
  Age: 88 Year
  Sex: Male

DRUGS (11)
  1. CLARITYNE (LORATADINE) TABLETS ^LIKE CLARITIN^ [Suspect]
     Dosage: UNKNOWN; ORAL
     Route: 048
     Dates: end: 20040114
  2. LAROXYL [Suspect]
     Dosage: 20 MG QD; ORAL
     Route: 048
     Dates: end: 20040114
  3. ATENOLOL [Suspect]
     Dosage: UNKNOWN; ORAL
     Route: 048
  4. PARACETAMOL [Suspect]
     Dates: end: 20040114
  5. IMIDAPRIL HCL [Suspect]
     Dosage: 5 MG QD
     Dates: end: 20040114
  6. CALCITONIN [Suspect]
  7. BUSPAR [Suspect]
     Route: 065
     Dates: end: 20040114
  8. VASTAREL [Suspect]
     Dates: end: 20040114
  9. PERIDYS [Suspect]
     Dates: end: 20040114
  10. DEBRIDAT [Suspect]
     Dosage: UNKNOWN
     Route: 065
  11. EQUANIL [Concomitant]

REACTIONS (7)
  - ABNORMAL BEHAVIOUR [None]
  - BLOOD BILIRUBIN INCREASED [None]
  - CONFUSIONAL STATE [None]
  - FALL [None]
  - GAMMA-GLUTAMYLTRANSFERASE INCREASED [None]
  - HEPATIC ENZYME INCREASED [None]
  - JAUNDICE [None]
